FAERS Safety Report 4868273-9 (Version None)
Quarter: 2005Q4

REPORT INFORMATION
  Report Type: 
  Country: None (occurrence: None)
  Receive Date: 20051229
  Receipt Date: 20050817
  Transmission Date: 20060501
  Serious: Yes (Hospitalization)
  Sender: FDA-Public Use
  Company Number: GB-SANOFI-SYNTHELABO-A01200505646

PATIENT
  Age: 57 Year
  Sex: Male

DRUGS (7)
  1. CLOPIDOGREL [Suspect]
     Indication: MYOCARDIAL INFARCTION
     Route: 048
     Dates: start: 20050606, end: 20050731
  2. ASPIRIN [Suspect]
     Indication: MYOCARDIAL INFARCTION
     Route: 048
     Dates: start: 20050606, end: 20050731
  3. ATORVASTATIN [Concomitant]
     Indication: MYOCARDIAL INFARCTION
     Route: 048
     Dates: start: 20050606
  4. BISOPROLOL [Concomitant]
     Indication: MYOCARDIAL INFARCTION
     Route: 048
     Dates: start: 20050606
  5. NICORANDIL [Concomitant]
     Indication: ANGINA PECTORIS
     Route: 048
     Dates: start: 20050601, end: 20050803
  6. METHENAMINE [Concomitant]
     Indication: INFECTION PROPHYLAXIS
     Route: 048
  7. GTN-S [Concomitant]
     Indication: ANGINA PECTORIS
     Route: 060
     Dates: start: 20050601

REACTIONS (7)
  - ASTHENIA [None]
  - DUODENITIS [None]
  - FAECES DISCOLOURED [None]
  - GASTRITIS [None]
  - HAEMATEMESIS [None]
  - HAEMOGLOBIN DECREASED [None]
  - OESOPHAGITIS [None]
